FAERS Safety Report 18082650 (Version 5)
Quarter: 2020Q4

REPORT INFORMATION
  Report Type: Report from Study
  Country: ES (occurrence: ES)
  Receive Date: 20200729
  Receipt Date: 20201215
  Transmission Date: 20210113
  Serious: Yes (Death)
  Sender: FDA-Public Use
  Company Number: ES-ROCHE-2639012

PATIENT
  Age: 82 Year
  Sex: Female
  Weight: 39.2 kg

DRUGS (12)
  1. MUPIROCINE [Concomitant]
     Active Substance: MUPIROCIN
  2. FAMOTIDINE. [Concomitant]
     Active Substance: FAMOTIDINE
  3. HIDROFEROL [Concomitant]
     Active Substance: CALCIFEDIOL
  4. VILDAGLIPTINA [Concomitant]
     Active Substance: VILDAGLIPTIN
  5. LORMETAZEPAM [Concomitant]
     Active Substance: LORMETAZEPAM
  6. PARACETAMOL [Concomitant]
     Active Substance: ACETAMINOPHEN
  7. ATEZOLIZUMAB. [Suspect]
     Active Substance: ATEZOLIZUMAB
     Indication: HEPATOCELLULAR CARCINOMA
     Dosage: DATE OF MOST RECENT DOSE OF ATEZOLIZUMAB ADMINISTERED PRIOR TO ONSET OF SAE ON 05/JUN/2020.
     Route: 042
     Dates: start: 20191023
  8. PHOSPHATE [Concomitant]
     Active Substance: UNSPECIFIED INGREDIENT
  9. XL184 [Suspect]
     Active Substance: CABOZANTINIB
     Indication: HEPATOCELLULAR CARCINOMA
     Dosage: DATE OF MOST RECENT DOSE OF CABOZANTINIB ADMINISTERED PRIOR TO ONSET OF SAE ON 25/JUN/2020.
     Route: 048
     Dates: start: 20191023
  10. ENOXAPARIN [Concomitant]
     Active Substance: ENOXAPARIN
  11. METFORMINE [Concomitant]
     Active Substance: METFORMIN HYDROCHLORIDE
  12. EUTIROX [Concomitant]
     Active Substance: LEVOTHYROXINE SODIUM

REACTIONS (1)
  - Pneumonia [Fatal]

NARRATIVE: CASE EVENT DATE: 20200626
